FAERS Safety Report 7383402-3 (Version None)
Quarter: 2011Q1

REPORT INFORMATION
  Report Type: 
  Country: None (occurrence: None)
  Receive Date: 20110330
  Receipt Date: 20110321
  Transmission Date: 20110831
  Serious: Yes (Hospitalization)
  Sender: FDA-Public Use
  Company Number: HR-ASTRAZENECA-2011SE15646

PATIENT
  Age: 24942 Day
  Sex: Male

DRUGS (8)
  1. MARTEFARIN [Interacting]
     Dosage: SMALLER DOSE
     Route: 048
     Dates: start: 20110228
  2. LANITOP [Concomitant]
     Indication: CARDIOMYOPATHY
     Route: 048
     Dates: start: 20020101
  3. CARVELOL [Concomitant]
     Indication: CARDIOMYOPATHY
     Route: 048
     Dates: start: 20100901
  4. TRITACE [Concomitant]
     Indication: CONGESTIVE CARDIOMYOPATHY
     Route: 048
     Dates: start: 20100901
  5. MARTEFARIN [Interacting]
     Indication: ATRIAL FIBRILLATION
     Route: 048
     Dates: start: 20021001, end: 20110225
  6. FURSEMID [Concomitant]
     Indication: CARDIOMYOPATHY
     Route: 048
     Dates: start: 20101001
  7. CASODEX [Suspect]
     Indication: PROSTATE CANCER
     Route: 048
     Dates: start: 20110101
  8. KALII CHLORIDI [Concomitant]
     Dosage: UNSPEC, EVERY THIRD DAY
     Route: 048
     Dates: start: 20101001

REACTIONS (3)
  - DRUG INTERACTION [None]
  - INTERNATIONAL NORMALISED RATIO INCREASED [None]
  - EPISTAXIS [None]
